FAERS Safety Report 18413201 (Version 1)
Quarter: 2020Q4

REPORT INFORMATION
  Report Type: Spontaneous
  Country: US (occurrence: US)
  Receive Date: 20201021
  Receipt Date: 20201021
  Transmission Date: 20210114
  Serious: Yes (Life-Threatening, Hospitalization, Other)
  Sender: FDA-Public Use
  Company Number: US-GILEAD-2020-0500243

PATIENT
  Age: 63 Year
  Sex: Male
  Weight: 87.9 kg

DRUGS (1)
  1. REMDESIVIR. [Suspect]
     Active Substance: REMDESIVIR
     Indication: COVID-19
     Dosage: 100 MG, QD
     Route: 042
     Dates: start: 20201005, end: 20201010

REACTIONS (1)
  - Lung assist device therapy [Not Recovered/Not Resolved]

NARRATIVE: CASE EVENT DATE: 20201009
